FAERS Safety Report 11694350 (Version 2)
Quarter: 2015Q4

REPORT INFORMATION
  Report Type: Spontaneous
  Country: CA (occurrence: CA)
  Receive Date: 20151103
  Receipt Date: 20151112
  Transmission Date: 20160304
  Serious: Yes (Hospitalization, Other)
  Sender: FDA-Public Use
  Company Number: CA-JNJFOC-20151018549

PATIENT
  Age: 58 Year
  Sex: Male

DRUGS (2)
  1. INSULIN [Concomitant]
     Active Substance: INSULIN NOS
     Route: 065
  2. INVOKANA [Suspect]
     Active Substance: CANAGLIFLOZIN
     Indication: DIABETES MELLITUS
     Route: 065

REACTIONS (1)
  - Diabetic ketoacidosis [Unknown]
